FAERS Safety Report 23781364 (Version 2)
Quarter: 2024Q3

REPORT INFORMATION
  Report Type: Spontaneous
  Country: CH (occurrence: CH)
  Receive Date: 20240425
  Receipt Date: 20240701
  Transmission Date: 20241017
  Serious: Yes (Other)
  Sender: BRISTOL MYERS SQUIBB
  Company Number: None

PATIENT
  Age: 38 Year
  Sex: Male

DRUGS (11)
  1. YERVOY [Suspect]
     Active Substance: IPILIMUMAB
     Indication: Metastatic malignant melanoma
     Dosage: FREQUENCY : CYCLICAL
     Dates: start: 202008, end: 202010
  2. YERVOY [Suspect]
     Active Substance: IPILIMUMAB
     Dosage: IN COMBINATION WITH NIVOLUMAB
     Dates: start: 20200814, end: 20200814
  3. YERVOY [Suspect]
     Active Substance: IPILIMUMAB
     Dosage: IN COMBINATION WITH NIVOLUMAB
     Dates: start: 20200904, end: 20200904
  4. YERVOY [Suspect]
     Active Substance: IPILIMUMAB
     Dosage: IN COMBINATION WITH NIVOLUMAB
     Dates: start: 20200925, end: 20200925
  5. YERVOY [Suspect]
     Active Substance: IPILIMUMAB
     Dates: start: 20201016, end: 20201016
  6. OPDIVO [Suspect]
     Active Substance: NIVOLUMAB
     Indication: Metastatic malignant melanoma
     Dosage: FREQUENCY ; CYCLICAL
     Dates: start: 202008, end: 202010
  7. OPDIVO [Suspect]
     Active Substance: NIVOLUMAB
     Dosage: IN COMBINATION WITH IPILIMUMAB
     Dates: start: 20200904, end: 20201016
  8. OPDIVO [Suspect]
     Active Substance: NIVOLUMAB
     Dosage: 2 CYCLES
     Dates: start: 20210211, end: 20211125
  9. OPDIVO [Suspect]
     Active Substance: NIVOLUMAB
     Dosage: IN COMBINATION WITH IPILIMUMAB ; IN TOTAL
     Dates: start: 20200814, end: 20200814
  10. ELIQUIS [Concomitant]
     Active Substance: APIXABAN
     Indication: Product used for unknown indication
  11. PANTOZOL [Concomitant]
     Active Substance: PANTOPRAZOLE SODIUM
     Indication: Product used for unknown indication

REACTIONS (1)
  - Autoimmune colitis [Unknown]
